FAERS Safety Report 15427514 (Version 2)
Quarter: 2019Q1

REPORT INFORMATION
  Report Type: Spontaneous
  Country: DE (occurrence: DE)
  Receive Date: 20180925
  Receipt Date: 20190306
  Transmission Date: 20190417
  Serious: Yes (Life-Threatening, Hospitalization)
  Sender: FDA-Public Use
  Company Number: PHHY2018DE107371

PATIENT
  Sex: Female
  Weight: 78 kg

DRUGS (51)
  1. LYRICA [Concomitant]
     Active Substance: PREGABALIN
     Indication: PRODUCT USED FOR UNKNOWN INDICATION
     Dosage: UNK (150 MG STRENGTH)
     Route: 065
     Dates: start: 20140129
  2. PROMETHAZINE [Concomitant]
     Active Substance: PROMETHAZINE\PROMETHAZINE HYDROCHLORIDE
     Dosage: UNK
     Route: 065
     Dates: start: 20140708
  3. ESOMEPRAZOL TAD [Concomitant]
     Active Substance: ESOMEPRAZOLE MAGNESIUM
     Dosage: UNK
     Route: 065
     Dates: start: 20140617
  4. VALSARTAN DURA [Concomitant]
     Active Substance: VALSARTAN
     Dosage: UNK  (40MG)
     Route: 065
     Dates: start: 20140616
  5. MCP [Concomitant]
     Active Substance: METOCLOPRAMIDE HYDROCHLORIDE
     Indication: PRODUCT USED FOR UNKNOWN INDICATION
     Dosage: UNK
     Route: 065
     Dates: start: 20141017
  6. INUVAIR [Concomitant]
     Active Substance: BECLOMETHASONE DIPROPIONATE\FORMOTEROL FUMARATE
     Indication: PRODUCT USED FOR UNKNOWN INDICATION
     Dosage: UNK (100/6UG)
     Route: 065
     Dates: start: 20140206
  7. INUVAIR [Concomitant]
     Active Substance: BECLOMETHASONE DIPROPIONATE\FORMOTEROL FUMARATE
     Dosage: UNK (100/6UG)
     Route: 065
     Dates: start: 20140429
  8. INUVAIR [Concomitant]
     Active Substance: BECLOMETHASONE DIPROPIONATE\FORMOTEROL FUMARATE
     Dosage: UNK (100/6UG)
     Route: 065
     Dates: start: 20141105
  9. NOVAMINSULFON [Concomitant]
     Active Substance: METAMIZOLE
     Indication: PRODUCT USED FOR UNKNOWN INDICATION
     Dosage: UNK
     Route: 065
     Dates: start: 20140403
  10. SERTRALIN BASICS [Concomitant]
     Dosage: UNK (100 MG)
     Route: 065
     Dates: start: 20140709
  11. BERODUAL N [Concomitant]
     Active Substance: FENOTEROL HYDROBROMIDE\IPRATROPIUM BROMIDE
     Indication: PRODUCT USED FOR UNKNOWN INDICATION
     Dosage: UNK ML, UNK
     Route: 065
     Dates: start: 20140527
  12. VALSARTAN ACTAVIS [Concomitant]
     Active Substance: VALSARTAN
     Indication: PRODUCT USED FOR UNKNOWN INDICATION
     Dosage: UNK
     Route: 065
     Dates: start: 20140617
  13. VALSARTAN ACTAVIS [Concomitant]
     Active Substance: VALSARTAN
     Dosage: UNK
     Route: 065
     Dates: start: 20140709
  14. OPIPRAMOL-NEURAXPHARM [Concomitant]
     Active Substance: OPIPRAMOL
     Indication: PRODUCT USED FOR UNKNOWN INDICATION
     Dosage: UNK
     Route: 065
     Dates: start: 20140129
  15. LYRICA [Concomitant]
     Active Substance: PREGABALIN
     Dosage: UNK (150MG STRENGTH)
     Route: 065
     Dates: start: 20140708
  16. ALVALIN [Concomitant]
     Dosage: UNK
     Route: 065
     Dates: start: 20140311
  17. VALDOXAN [Concomitant]
     Active Substance: AGOMELATINE
     Indication: PRODUCT USED FOR UNKNOWN INDICATION
     Dosage: UNK
     Route: 065
     Dates: start: 20140206
  18. ESOMEPRAZOL TAD [Concomitant]
     Active Substance: ESOMEPRAZOLE MAGNESIUM
     Dosage: UNK
     Route: 065
     Dates: start: 20140916
  19. VALSARTAN DURA [Concomitant]
     Active Substance: VALSARTAN
     Dosage: UNK  (40MG)
     Route: 065
     Dates: start: 20140527
  20. VALSARTAN DURA [Concomitant]
     Active Substance: VALSARTAN
     Dosage: UNK  (40MG)
     Route: 065
     Dates: start: 20140929
  21. IBUFLAM [Concomitant]
     Active Substance: IBUPROFEN
     Indication: PRODUCT USED FOR UNKNOWN INDICATION
     Dosage: UNK
     Route: 065
  22. VALSARTAN 1 A PHARMA [Suspect]
     Active Substance: VALSARTAN
     Indication: HYPERTENSION
     Dosage: 80 MG, BID
     Route: 048
     Dates: start: 20140916, end: 20150108
  23. LYRICA [Concomitant]
     Active Substance: PREGABALIN
     Dosage: UNK (150MG)
     Route: 065
     Dates: start: 20141114
  24. PROMETHAZINE [Concomitant]
     Active Substance: PROMETHAZINE\PROMETHAZINE HYDROCHLORIDE
     Dosage: UNK
     Route: 065
     Dates: start: 20141222
  25. CIATYL-Z [Concomitant]
     Active Substance: ZUCLOPENTHIXOL
     Indication: PRODUCT USED FOR UNKNOWN INDICATION
     Dosage: UNK
     Route: 065
     Dates: start: 20140226
  26. VALSARTAN DURA [Concomitant]
     Active Substance: VALSARTAN
     Indication: PRODUCT USED FOR UNKNOWN INDICATION
     Dosage: UNK (40MG)
     Route: 065
     Dates: start: 20140429
  27. SERTRALIN BASICS [Concomitant]
     Dosage: UNK (100 MG)
     Route: 065
     Dates: start: 20140819
  28. SERTRALIN BASICS [Concomitant]
     Dosage: UNK (100 MG)
     Route: 065
     Dates: start: 20141114
  29. VALSACOR [Concomitant]
     Active Substance: VALSARTAN
     Dosage: UNK (80/125MG)
     Route: 065
     Dates: start: 20141215
  30. VALSARTAN 1 A PHARMA [Suspect]
     Active Substance: VALSARTAN
     Dosage: 80 MG, UNK
     Route: 065
     Dates: start: 20150108
  31. LYRICA [Concomitant]
     Active Substance: PREGABALIN
     Dosage: UNK (150MG STRENGTH)
     Route: 065
     Dates: start: 20140929
  32. ALVALIN [Concomitant]
     Indication: PRODUCT USED FOR UNKNOWN INDICATION
     Dosage: UNK
     Route: 065
     Dates: start: 20140129
  33. VALDOXAN [Concomitant]
     Active Substance: AGOMELATINE
     Dosage: UNK
     Route: 065
     Dates: start: 20140513
  34. INUVAIR [Concomitant]
     Active Substance: BECLOMETHASONE DIPROPIONATE\FORMOTEROL FUMARATE
     Dosage: UNK (100/6UG)
     Route: 065
     Dates: start: 20140627
  35. ESOMEPRAZOL TAD [Concomitant]
     Active Substance: ESOMEPRAZOLE MAGNESIUM
     Indication: PRODUCT USED FOR UNKNOWN INDICATION
     Dosage: UNK
     Route: 065
     Dates: start: 20140403
  36. VALSARTAN HCTZ [Suspect]
     Active Substance: HYDROCHLOROTHIAZIDE\VALSARTAN
     Indication: PRODUCT USED FOR UNKNOWN INDICATION
     Dosage: UNK MG, UNK
     Route: 065
     Dates: start: 20140617
  37. PROMETHAZINE [Concomitant]
     Active Substance: PROMETHAZINE\PROMETHAZINE HYDROCHLORIDE
     Indication: PRODUCT USED FOR UNKNOWN INDICATION
     Dosage: UNK
     Route: 065
     Dates: start: 20140206
  38. ESOMEPRAZOL TAD [Concomitant]
     Active Substance: ESOMEPRAZOLE MAGNESIUM
     Dosage: UNK
     Route: 065
     Dates: start: 20141215
  39. SERTRALIN BASICS [Concomitant]
     Dosage: UNK (100 MG)
     Route: 065
     Dates: start: 20140513
  40. ALPRAZOLAM. [Concomitant]
     Active Substance: ALPRAZOLAM
     Indication: PRODUCT USED FOR UNKNOWN INDICATION
     Dosage: UNK
     Route: 065
     Dates: start: 20140627
  41. FINALGON [Concomitant]
     Indication: PRODUCT USED FOR UNKNOWN INDICATION
     Dosage: UNK
     Route: 065
     Dates: start: 20140129
  42. INUVAIR [Concomitant]
     Active Substance: BECLOMETHASONE DIPROPIONATE\FORMOTEROL FUMARATE
     Dosage: UNK (100/6UG)
     Route: 065
     Dates: start: 20140715
  43. SERTRALIN BASICS [Concomitant]
     Indication: PRODUCT USED FOR UNKNOWN INDICATION
     Dosage: UNK (50 MG)
     Route: 065
     Dates: start: 20140513
  44. ALPRAZOLAM. [Concomitant]
     Active Substance: ALPRAZOLAM
     Dosage: UNK
     Route: 065
     Dates: start: 20141114
  45. LYRICA [Concomitant]
     Active Substance: PREGABALIN
     Dosage: UNK (300MG STRENGTH)
     Route: 065
     Dates: start: 20140206
  46. LYRICA [Concomitant]
     Active Substance: PREGABALIN
     Dosage: UNK (150MG STRENGTH)
     Route: 065
     Dates: start: 20140320
  47. LYRICA [Concomitant]
     Active Substance: PREGABALIN
     Dosage: UNK (150MG STRENGTH)
     Route: 065
     Dates: start: 20140513
  48. LYRICA [Concomitant]
     Active Substance: PREGABALIN
     Dosage: UNK (150MG STRENGTH)
     Route: 065
     Dates: start: 20140819
  49. VALSARTAN DURA [Concomitant]
     Active Substance: VALSARTAN
     Dosage: UNK  (40MG)
     Route: 065
     Dates: start: 20140709
  50. VALSARTAN DURA [Concomitant]
     Active Substance: VALSARTAN
     Dosage: UNK (80MG)
     Route: 065
     Dates: start: 20141120
  51. VALSACOR [Concomitant]
     Active Substance: VALSARTAN
     Indication: PRODUCT USED FOR UNKNOWN INDICATION
     Dosage: UNK (80/125MG)
     Route: 065
     Dates: start: 20141017

REACTIONS (2)
  - Breast cancer [Unknown]
  - Impaired healing [Unknown]

NARRATIVE: CASE EVENT DATE: 20170119
